FAERS Safety Report 8554930-X (Version None)
Quarter: 2012Q3

REPORT INFORMATION
  Report Type: 
  Country: None (occurrence: None)
  Receive Date: 20120731
  Receipt Date: 20120720
  Transmission Date: 20120928
  Serious: Yes (Hospitalization)
  Sender: FDA-Public Use
  Company Number: US-ROCHE-1091345

PATIENT
  Sex: Male
  Weight: 70.9 kg

DRUGS (4)
  1. CELLCEPT [Suspect]
     Indication: NEPHROPATHY
  2. PROGRAF [Concomitant]
     Dates: start: 20111001
  3. PREDNISONE [Concomitant]
  4. MABTHERA [Suspect]
     Indication: NEPHROPATHY
     Route: 042

REACTIONS (1)
  - URINE OUTPUT DECREASED [None]
